FAERS Safety Report 7724326-9 (Version None)
Quarter: 2011Q3

REPORT INFORMATION
  Report Type: 
  Country: None (occurrence: None)
  Receive Date: 20110901
  Receipt Date: 20110829
  Transmission Date: 20111222
  Serious: Yes (Hospitalization, Other)
  Sender: FDA-Public Use
  Company Number: GB-PFIZER INC-2011200721

PATIENT
  Age: 4 Month
  Sex: Male

DRUGS (2)
  1. PROPRANOLOL HCL [Suspect]
     Indication: HAEMANGIOMA
     Dosage: 1 MG/KG, DAILY
  2. PROPRANOLOL HCL [Suspect]
     Dosage: 2 MG/KG, DAILY

REACTIONS (1)
  - HAEMANGIOMA [None]
